FAERS Safety Report 9139411 (Version 1)
Quarter: 2013Q1

REPORT INFORMATION
  Report Type: Spontaneous
  Country: AR (occurrence: AR)
  Receive Date: 20130305
  Receipt Date: 20130305
  Transmission Date: 20140127
  Serious: Yes (Hospitalization, Other)
  Sender: FDA-Public Use
  Company Number: PHHY2013AR021438

PATIENT
  Sex: Male

DRUGS (1)
  1. DIOVAN D [Suspect]
     Indication: HYPERTENSION
     Dosage: 1.5 DF(160/12.5MG), DAILY
     Route: 048
     Dates: start: 2007

REACTIONS (3)
  - Thrombosis [Recovering/Resolving]
  - Umbilical hernia [Recovering/Resolving]
  - Wrong technique in drug usage process [Unknown]
